FAERS Safety Report 9841423 (Version 1)
Quarter: 2013Q4

REPORT INFORMATION
  Report Type: Spontaneous
  Country: US (occurrence: None)
  Receive Date: 20131211
  Receipt Date: 20131211
  Transmission Date: 20140711
  Serious: Yes (Hospitalization)
  Sender: FDA-Public Use
  Company Number: FK201204162

PATIENT
  Age: 51 Year
  Sex: Female
  Weight: 78 kg

DRUGS (10)
  1. CARBOPLATIN [Suspect]
     Indication: OVARIAN CANCER
     Dosage: 530 MG, INTRAVENOUS  (NOT OTHERWISE SPECIFIED)
     Route: 042
     Dates: start: 20110315
  2. MORAB-003 (FARLETUZUMAB) (FARLETUZUMAB) [Suspect]
     Indication: OVARIAN CANCER
     Dates: start: 20120315, end: 20120315
  3. DOCETAXEL (DOCETAXEL) (DOCETAXEL) [Concomitant]
     Indication: OVARIAN CANCER
     Dosage: 139 MG, INTRAVENOUS (NOT SPECIFIED)
     Route: 042
     Dates: start: 20110313
  4. DIPHENYDRAMINE (DIPHENHYDRAMINE) [Concomitant]
  5. PALONOSETRON (PALONOSETRON) [Concomitant]
  6. ACETAMINOPHEN (PARACETAMOL) [Concomitant]
  7. DOCUSATE SODIUM (DOCUSATE SODIUM) [Concomitant]
  8. IBUPROFEN (IBUPROFEN) [Concomitant]
  9. LORATADINE) (LORATADINE) [Concomitant]
  10. TESTOSTERONE (TESTOSTERONE) [Concomitant]

REACTIONS (1)
  - Febrile neutropenia [None]
